FAERS Safety Report 24044560 (Version 4)
Quarter: 2024Q4

REPORT INFORMATION
  Report Type: Spontaneous
  Country: FR (occurrence: FR)
  Receive Date: 20240703
  Receipt Date: 20241001
  Transmission Date: 20250115
  Serious: Yes (Hospitalization, Other)
  Sender: AUROBINDO
  Company Number: FR-ROCHE-10000001710

PATIENT
  Age: 73 Year
  Sex: Female
  Weight: 87 kg

DRUGS (48)
  1. DOXORUBICIN [Suspect]
     Active Substance: DOXORUBICIN
     Indication: B-cell lymphoma
     Dosage: 96 MILLIGRAM, EVERY 3 WEEK (ON 29/MAY/2024, MOST RECENT DOSE (91 MG) PRIOR TO AE/SAE WAS TAKEN.)
     Route: 042
     Dates: start: 20240214
  2. PREDNISONE [Suspect]
     Active Substance: PREDNISONE
     Indication: B-cell lymphoma
     Dosage: 100 MILLIGRAM, EVERY 3 WEEK (ON 29/MAY/2024, MOST RECENT DOSE (100 MG) PRIOR TO AE/SAE WAS TAKEN. ON
     Route: 048
     Dates: start: 20240214
  3. CYCLOPHOSPHAMIDE [Suspect]
     Active Substance: CYCLOPHOSPHAMIDE
     Indication: B-cell lymphoma
     Dosage: 1440 MILLIGRAM, EVERY 3 WEEK ON 29/MAY/2024, MOST RECENT DOSE (1366 MG) WAS TAKEN.
     Route: 042
     Dates: start: 20240214
  4. POLIVY [Suspect]
     Active Substance: POLATUZUMAB VEDOTIN-PIIQ
     Indication: B-cell lymphoma
     Dosage: 162 MILLIGRAM, EVERY 3 WEEK (ON 29/MAY/2024, MOST RECENT DOSE (144 MG) PRIOR TO AE/SAE WAS TAKEN.)
     Route: 042
     Dates: start: 20240214
  5. MABTHERA [Suspect]
     Active Substance: RITUXIMAB
     Indication: B-cell lymphoma
     Dosage: 720 MILLIGRAM, EVERY 3 WEEK (ON 29/MAY/2024, MOST RECENT DOSE (683 MG) PRIOR TO AE/SAE WAS TAKEN.)
     Route: 042
     Dates: start: 20240214
  6. ACETAMINOPHEN [Concomitant]
     Active Substance: ACETAMINOPHEN
     Indication: Product used for unknown indication
     Dosage: 1 GRAM, ONCE A DAY
     Route: 048
  7. ACETAMINOPHEN [Concomitant]
     Active Substance: ACETAMINOPHEN
     Dosage: 1 GRAM, ONCE A DAY
     Route: 048
     Dates: start: 20240507, end: 20240507
  8. ACETAMINOPHEN [Concomitant]
     Active Substance: ACETAMINOPHEN
     Dosage: 1 GRAM, ONCE A DAY
     Route: 042
     Dates: start: 20240620, end: 20240620
  9. ACETAMINOPHEN [Concomitant]
     Active Substance: ACETAMINOPHEN
     Dosage: 1 GRAM, ONCE A DAY
     Route: 042
     Dates: start: 20240327, end: 20240327
  10. ACETAMINOPHEN [Concomitant]
     Active Substance: ACETAMINOPHEN
     Dosage: 1 GRAM, ONCE A DAY
     Route: 042
     Dates: start: 20240529, end: 20240529
  11. ACETAMINOPHEN [Concomitant]
     Active Substance: ACETAMINOPHEN
     Dosage: 1 GRAM, ONCE A DAY
     Route: 042
     Dates: start: 20240710, end: 20240710
  12. ACETAMINOPHEN [Concomitant]
     Active Substance: ACETAMINOPHEN
     Dosage: 1 GRAM, ONCE A DAY
     Route: 042
     Dates: start: 20240306, end: 20240306
  13. INDAPAMIDE [Concomitant]
     Active Substance: INDAPAMIDE
     Indication: Hypertension
     Dosage: 1.5 MILLIGRAM, ONCE A DAY
     Route: 048
  14. APREPITANT [Concomitant]
     Active Substance: APREPITANT
     Indication: Product used for unknown indication
     Dosage: GIVEN FOR PROPHYLAXIS IS YES
     Route: 048
  15. APREPITANT [Concomitant]
     Active Substance: APREPITANT
     Dosage: 125 MILLIGRAM, ONCE A DAY (GIVEN FOR PROPHYLAXIS IS YES)
     Route: 048
     Dates: start: 20240529, end: 20240529
  16. BISOPROLOL FUMARATE [Concomitant]
     Active Substance: BISOPROLOL FUMARATE
     Indication: Atrial fibrillation
     Dosage: 5 MILLIGRAM, ONCE A DAY
     Route: 048
  17. FILGRASTIM [Concomitant]
     Active Substance: FILGRASTIM
     Indication: Product used for unknown indication
     Dosage: UNK
     Route: 058
     Dates: start: 20240612
  18. LENOGRASTIM [Concomitant]
     Active Substance: LENOGRASTIM
     Indication: Product used for unknown indication
     Dosage: 34000 INTERNATIONAL UNIT, ONCE A DAY (GIVEN FOR PROPHYLAXIS IS YES)
     Route: 058
     Dates: start: 20240404, end: 20240405
  19. LENOGRASTIM [Concomitant]
     Active Substance: LENOGRASTIM
     Dosage: 34000 INTERNATIONAL UNIT, ONCE A DAY (GIVEN FOR PROPHYLAXIS IS YES)
     Route: 058
     Dates: start: 20240422, end: 20240428
  20. LENOGRASTIM [Concomitant]
     Active Substance: LENOGRASTIM
     Dosage: 34000 INTERNATIONAL UNIT, ONCE A DAY (GIVEN FOR PROPHYLAXIS IS YES)
     Route: 058
     Dates: start: 20240512, end: 20240516
  21. LENOGRASTIM [Concomitant]
     Active Substance: LENOGRASTIM
     Dosage: 34000 INTERNATIONAL UNIT, ONCE A DAY (GIVEN FOR PROPHYLAXIS IS YES)
     Route: 058
     Dates: start: 20240603, end: 20240607
  22. FUROSEMIDE [Concomitant]
     Active Substance: FUROSEMIDE
     Indication: Hypertension
     Dosage: 20 MILLIGRAM, ONCE A DAY
     Route: 048
     Dates: start: 20240327
  23. ESOMEPRAZOLE [Concomitant]
     Active Substance: ESOMEPRAZOLE
     Indication: Gastrooesophageal reflux disease
     Dosage: 40 MILLIGRAM, ONCE A DAY
     Route: 048
  24. PLATELETS [Concomitant]
     Active Substance: HUMAN PLATELET, ALLOGENIC
     Indication: Product used for unknown indication
     Dosage: 800 MILLILITER, ONCE A DAY
     Route: 042
     Dates: start: 20240611
  25. RACECADOTRIL [Concomitant]
     Active Substance: RACECADOTRIL
     Indication: Product used for unknown indication
     Dosage: GIVEN FOR PROPHYLAXIS IS YES
     Route: 048
     Dates: start: 20240306
  26. ONDANSETRON [Concomitant]
     Active Substance: ONDANSETRON
     Indication: Product used for unknown indication
     Dosage: GIVEN FOR PROPHYLAXIS IS YES
     Route: 048
  27. ONDANSETRON [Concomitant]
     Active Substance: ONDANSETRON
     Dosage: 8 MILLIGRAM, ONCE A DAY (GIVEN FOR PROPHYLAXIS IS YESQ)
     Route: 065
  28. VALACYCLOVIR HYDROCHLORIDE [Concomitant]
     Active Substance: VALACYCLOVIR HYDROCHLORIDE
     Indication: Product used for unknown indication
     Dosage: 500 MILLIGRAM,TWO TIMES A DAY(GIVEN FOR PROPHYLAXIS IS YES)
     Route: 048
  29. CHOLECALCIFEROL [Concomitant]
     Active Substance: CHOLECALCIFEROL
     Indication: Product used for unknown indication
     Dosage: 100000 INTERNATIONAL UNIT (GIVEN FOR PROPHYLAXIS IS YES)
     Route: 048
  30. DEXCHLORPHENIRAMINE [Concomitant]
     Active Substance: DEXCHLORPHENIRAMINE
     Indication: Product used for unknown indication
     Dosage: 5 MILLIGRAM, ONCE A DAY
     Route: 042
     Dates: start: 20240507, end: 20240507
  31. DEXCHLORPHENIRAMINE [Concomitant]
     Active Substance: DEXCHLORPHENIRAMINE
     Dosage: 5 MILLIGRAM, ONCE A DAY
     Route: 042
     Dates: start: 20240529, end: 20240529
  32. DEXCHLORPHENIRAMINE [Concomitant]
     Active Substance: DEXCHLORPHENIRAMINE
     Dosage: 5 MILLIGRAM, ONCE A DAY
     Route: 042
     Dates: start: 20240214, end: 20240214
  33. DEXCHLORPHENIRAMINE [Concomitant]
     Active Substance: DEXCHLORPHENIRAMINE
     Dosage: 5 MILLIGRAM, ONCE A DAY
     Route: 042
     Dates: start: 20240620, end: 20240620
  34. DEXCHLORPHENIRAMINE [Concomitant]
     Active Substance: DEXCHLORPHENIRAMINE
     Dosage: 5 MILLIGRAM, ONCE A DAY
     Route: 042
     Dates: start: 20240306, end: 20240306
  35. DEXCHLORPHENIRAMINE [Concomitant]
     Active Substance: DEXCHLORPHENIRAMINE
     Dosage: 5 MILLIGRAM, ONCE A DAY
     Route: 042
     Dates: start: 20240417, end: 20240417
  36. DEXCHLORPHENIRAMINE [Concomitant]
     Active Substance: DEXCHLORPHENIRAMINE
     Dosage: 5 MILLIGRAM, ONCE A DAY
     Route: 042
     Dates: start: 20240710, end: 20240710
  37. ERYTHROPOIETIN [Concomitant]
     Active Substance: ERYTHROPOIETIN
     Indication: Anaemia
     Dosage: UNK
     Route: 042
  38. MESNA [Concomitant]
     Active Substance: MESNA
     Indication: Product used for unknown indication
     Dosage: 954.5 MILLIGRAM, TWO TIMES A DAY (GIVEN FOR PROPHYLAXIS IS YES)
     Route: 048
     Dates: start: 20240507, end: 20240507
  39. MESNA [Concomitant]
     Active Substance: MESNA
     Dosage: 477.25 MILLIGRAM, ONCE A DAY (GIVEN FOR PROPHYLAXIS IS YES  )
     Route: 042
     Dates: start: 20240507, end: 20240507
  40. MESNA [Concomitant]
     Active Substance: MESNA
     Dosage: 954.5 MILLIGRAM, TWO TIMES A DAY (GIVEN FOR PROPHYLAXIS IS YES)
     Route: 048
     Dates: start: 20240529, end: 20240529
  41. MESNA [Concomitant]
     Active Substance: MESNA
     Dosage: 477.25 MILLIGRAM, ONCE A DAY (GIVEN FOR PROPHYLAXIS IS YES)
     Route: 042
     Dates: start: 20240529, end: 20240529
  42. MONTMORILLONITE [Concomitant]
     Active Substance: MONTMORILLONITE
     Indication: Product used for unknown indication
     Dosage: UNK UNK, AS NECESSARY (~GIVEN FOR PROPHYLAXIS IS YES  )
     Route: 048
     Dates: start: 20240306
  43. TINZAPARIN SODIUM [Concomitant]
     Active Substance: TINZAPARIN SODIUM
     Indication: Product used for unknown indication
     Dosage: 14000 INTERNATIONAL UNIT, ONCE A DAY
     Route: 058
     Dates: start: 20240417
  44. SULFAMETHOXAZOLE AND TRIMETHOPRIM [Concomitant]
     Active Substance: SULFAMETHOXAZOLE\TRIMETHOPRIM
     Indication: Product used for unknown indication
     Dosage: 960 MILLIGRAM, 0.33 DAY (GIVEN FOR PROPHYLAXIS IS YES)
     Route: 048
     Dates: start: 20240214
  45. TINZAPARIN SODIUM [Concomitant]
     Active Substance: TINZAPARIN SODIUM
     Indication: Product used for unknown indication
     Dosage: 14000 DOSAGE FORM, ONCE A DAY
     Route: 058
     Dates: start: 20240417
  46. PREDNISONE [Concomitant]
     Active Substance: PREDNISONE
     Indication: Product used for unknown indication
     Dosage: 100 MILLIGRAM, ONCE A DAY
     Route: 048
     Dates: start: 20240620, end: 20240620
  47. PREDNISONE [Concomitant]
     Active Substance: PREDNISONE
     Dosage: 100 MILLIGRAM, ONCE A DAY
     Route: 048
     Dates: start: 20240710, end: 20240710
  48. POTASSIUM CHLORIDE [Concomitant]
     Active Substance: POTASSIUM CHLORIDE
     Indication: Product used for unknown indication
     Dosage: 600 MILLIGRAM, ONCE A DAY
     Route: 048
     Dates: start: 20240830

REACTIONS (2)
  - Thrombocytopenia [Not Recovered/Not Resolved]
  - Anaemia [Not Recovered/Not Resolved]

NARRATIVE: CASE EVENT DATE: 20240306
